FAERS Safety Report 5026351-8 (Version None)
Quarter: 2006Q2

REPORT INFORMATION
  Report Type: 
  Country: None (occurrence: None)
  Receive Date: 20060615
  Receipt Date: 20060606
  Transmission Date: 20061013
  Serious: Yes (Hospitalization)
  Sender: FDA-Public Use
  Company Number: FR-BRISTOL-MYERS SQUIBB COMPANY-13409628

PATIENT
  Age: 72 Year
  Sex: Male

DRUGS (9)
  1. FOZITEC [Suspect]
     Route: 048
     Dates: start: 20060224, end: 20060505
  2. GABAPENTIN [Suspect]
     Route: 048
  3. ALLOPURINOL [Suspect]
     Route: 048
     Dates: end: 20060509
  4. PAROXETINE HCL [Suspect]
     Route: 048
     Dates: end: 20060510
  5. AMIODARONE HCL [Suspect]
     Route: 048
     Dates: end: 20060510
  6. SIMVASTATIN [Suspect]
     Route: 048
     Dates: end: 20060510
  7. LASILIX [Suspect]
     Route: 048
     Dates: end: 20060428
  8. PERMIXON [Suspect]
     Route: 048
  9. VITAMIN B1 + B6 [Suspect]
     Route: 048

REACTIONS (5)
  - DERMATITIS BULLOUS [None]
  - PURPURA [None]
  - RASH PUSTULAR [None]
  - RENAL FAILURE [None]
  - SKIN NECROSIS [None]
